FAERS Safety Report 8198042-6 (Version None)
Quarter: 2012Q1

REPORT INFORMATION
  Report Type: 
  Country: None (occurrence: None)
  Receive Date: 20120309
  Receipt Date: 20120302
  Transmission Date: 20120608
  Serious: Yes (Other)
  Sender: FDA-Public Use
  Company Number: US-JNJFOC-20120302108

PATIENT
  Age: 22 Year
  Sex: Male

DRUGS (3)
  1. INVEGA SUSTENNA [Suspect]
     Indication: PRODUCT USED FOR UNKNOWN INDICATION
     Route: 030
  2. HALDOL [Concomitant]
     Route: 065
  3. LITHIUM CARBONATE [Concomitant]
     Route: 048

REACTIONS (1)
  - PSYCHOTIC DISORDER [None]
